FAERS Safety Report 9717764 (Version 1)
Quarter: 2013Q4

REPORT INFORMATION
  Report Type: Spontaneous
  Country: JP (occurrence: JP)
  Receive Date: 20131127
  Receipt Date: 20131127
  Transmission Date: 20140711
  Serious: Yes (Hospitalization)
  Sender: FDA-Public Use
  Company Number: JP-GLAXOSMITHKLINE-B0894567A

PATIENT
  Age: 83 Year
  Sex: Female

DRUGS (4)
  1. SERETIDE [Suspect]
     Indication: ASTHMA
     Route: 055
  2. TULOBUTEROL [Concomitant]
     Route: 062
  3. NEOPHYLLIN [Concomitant]
     Route: 065
  4. THEOPHYLLINE [Concomitant]
     Route: 065

REACTIONS (2)
  - Asthma [Unknown]
  - Tachycardia [Recovered/Resolved]
